FAERS Safety Report 6963153-7 (Version None)
Quarter: 2010Q3

REPORT INFORMATION
  Report Type: 
  Country: None (occurrence: None)
  Receive Date: 20100902
  Receipt Date: 20100824
  Transmission Date: 20110219
  Serious: Yes (Other)
  Sender: FDA-Public Use
  Company Number: PHHY2010AR56299

PATIENT
  Sex: Female

DRUGS (2)
  1. DIOVAN [Suspect]
     Indication: CARDIAC DISORDER
     Dosage: 1 TABLET (160 MG) DAILY
     Dates: start: 20100816
  2. DIOVAN [Suspect]
     Dosage: HALF THE DOSE DAILY

REACTIONS (3)
  - AGITATION [None]
  - EPISTAXIS [None]
  - MUSCLE SPASMS [None]
